FAERS Safety Report 7062981-X (Version None)
Quarter: 2010Q4

REPORT INFORMATION
  Report Type: 
  Country: None (occurrence: None)
  Receive Date: 20101026
  Receipt Date: 20100316
  Transmission Date: 20110411
  Serious: Yes (Other)
  Sender: FDA-Public Use
  Company Number: US-PFIZER INC-2010034533

PATIENT
  Sex: Male

DRUGS (1)
  1. LIPITOR [Suspect]
     Dosage: UNK

REACTIONS (5)
  - ABDOMINAL PAIN [None]
  - ARTHRALGIA [None]
  - BLOOD CHOLESTEROL INCREASED [None]
  - RASH [None]
  - WEIGHT INCREASED [None]
